FAERS Safety Report 9450855 (Version 1)
Quarter: 2013Q3

REPORT INFORMATION
  Report Type: Spontaneous
  Country: US (occurrence: US)
  Receive Date: 20130809
  Receipt Date: 20130809
  Transmission Date: 20140515
  Serious: No
  Sender: FDA-Public Use
  Company Number: US-009507513-1308USA004397

PATIENT
  Age: 18 Year
  Sex: Male
  Weight: 102.4 kg

DRUGS (1)
  1. CLARITIN-D-24 [Suspect]
     Indication: HYPERSENSITIVITY
     Dosage: 10 MG, Q12H
     Dates: start: 20130802, end: 20130803

REACTIONS (2)
  - Accidental overdose [Recovering/Resolving]
  - No adverse event [Recovering/Resolving]
